FAERS Safety Report 7540207-8 (Version None)
Quarter: 2011Q2

REPORT INFORMATION
  Report Type: 
  Country: None (occurrence: None)
  Receive Date: 20110610
  Receipt Date: 20110608
  Transmission Date: 20111010
  Serious: Yes (Death)
  Sender: FDA-Public Use
  Company Number: US-ABBOTT-11P-163-0730942-00

PATIENT
  Sex: Male

DRUGS (2)
  1. HUMIRA [Suspect]
     Dates: end: 20101001
  2. HUMIRA [Suspect]
     Indication: PSORIASIS
     Dates: start: 20081101, end: 20091001

REACTIONS (2)
  - ALCOHOL POISONING [None]
  - CARDIOMEGALY [None]
